FAERS Safety Report 8365191-9 (Version None)
Quarter: 2012Q2

REPORT INFORMATION
  Report Type: 
  Country: None (occurrence: None)
  Receive Date: 20120516
  Receipt Date: 20120511
  Transmission Date: 20120825
  Serious: Yes (Hospitalization, Other)
  Sender: FDA-Public Use
  Company Number: US-PFIZER INC-2012115730

PATIENT
  Age: 88 Year
  Sex: Female

DRUGS (6)
  1. XALATAN [Suspect]
     Indication: GLAUCOMA
     Dosage: 1 GTT IN EACH EYE, 1X/DAY
     Route: 047
  2. VITAMIN K TAB [Concomitant]
     Dosage: UNK
  3. POTASSIUM [Concomitant]
     Dosage: UNK
  4. CALCIUM [Concomitant]
     Dosage: UNK
  5. DYAZIDE [Concomitant]
     Indication: OEDEMA
     Dosage: UNK
  6. BUMEX [Concomitant]
     Dosage: UNK

REACTIONS (4)
  - LOWER LIMB FRACTURE [None]
  - CATARACT [None]
  - VISUAL ACUITY REDUCED [None]
  - FALL [None]
